FAERS Safety Report 11433585 (Version 5)
Quarter: 2017Q1

REPORT INFORMATION
  Report Type: Report from Study
  Country: JP (occurrence: JP)
  Receive Date: 20150831
  Receipt Date: 20170315
  Transmission Date: 20170428
  Serious: Yes (Hospitalization, Other)
  Sender: FDA-Public Use
  Company Number: JP-009507513-1508JPN011768

PATIENT
  Age: 70 Year
  Sex: Male

DRUGS (3)
  1. EPZICOM [Suspect]
     Active Substance: ABACAVIR SULFATE\LAMIVUDINE
     Indication: HIV INFECTION
     Dosage: 1 DF, UNK
     Route: 048
     Dates: start: 20100611, end: 20150528
  2. TIVICAY [Suspect]
     Active Substance: DOLUTEGRAVIR SODIUM
     Indication: HIV INFECTION
     Dosage: 50 MG, UNK
     Route: 048
     Dates: start: 20140717, end: 20150528
  3. ISENTRESS [Suspect]
     Active Substance: RALTEGRAVIR POTASSIUM
     Indication: HIV INFECTION
     Dosage: 800 MG, UNK
     Route: 048
     Dates: start: 20100611, end: 20140716

REACTIONS (1)
  - Thymoma [Recovered/Resolved]

NARRATIVE: CASE EVENT DATE: 201408
